FAERS Safety Report 16928295 (Version 1)
Quarter: 2019Q4

REPORT INFORMATION
  Report Type: Spontaneous
  Country: DE (occurrence: DE)
  Receive Date: 20191017
  Receipt Date: 20191017
  Transmission Date: 20200122
  Serious: Yes (Other)
  Sender: FDA-Public Use
  Company Number: DE-LUPIN PHARMACEUTICALS INC.-2019-06572

PATIENT
  Sex: Female

DRUGS (5)
  1. LEVONORGESTREL. [Suspect]
     Active Substance: LEVONORGESTREL
     Indication: CONTRACEPTION
     Dosage: UNK
     Route: 065
  2. ETHINYL OESTRADIOL [Suspect]
     Active Substance: ETHINYL ESTRADIOL
     Indication: CONTRACEPTION
     Dosage: UNK
     Route: 065
  3. BUDESONIDE. [Suspect]
     Active Substance: BUDESONIDE
     Indication: ASTHMA
     Dosage: UNK
     Route: 065
  4. PARACETAMOL [Suspect]
     Active Substance: ACETAMINOPHEN
     Indication: PAIN
     Dosage: UNK UNK, QD (500-1000 MG AS NEEDED 4000 IN TOTAL)
     Route: 065
  5. TICK-BORNE ENCEPHALITIS VACCINE [Suspect]
     Active Substance: TICK-BORNE ENCEPHALITIS VACCINE
     Indication: TICK-BORNE ENCEPHALITIS IMMUNISATION
     Dosage: UNK
     Route: 065

REACTIONS (2)
  - Exposure during pregnancy [Unknown]
  - Oligohydramnios [Unknown]
